FAERS Safety Report 13473482 (Version 1)
Quarter: 2017Q2

REPORT INFORMATION
  Report Type: Spontaneous
  Country: US (occurrence: US)
  Receive Date: 20170424
  Receipt Date: 20170424
  Transmission Date: 20170830
  Serious: No
  Sender: FDA-Public Use
  Company Number: US-ASTELLAS-2017US011991

PATIENT
  Age: 87 Year
  Sex: Male

DRUGS (1)
  1. LEXISCAN [Suspect]
     Active Substance: REGADENOSON
     Indication: SCAN MYOCARDIAL PERFUSION
     Dosage: 0.4MG/5ML, OVER 7-10 SECONDS
     Route: 042
     Dates: start: 20170327, end: 20170327

REACTIONS (4)
  - Administration site swelling [Recovered/Resolved]
  - Injection site pain [Recovered/Resolved]
  - Incorrect drug administration duration [Recovered/Resolved]
  - Injection site extravasation [Recovered/Resolved]

NARRATIVE: CASE EVENT DATE: 20170327
